FAERS Safety Report 5163237-2 (Version None)
Quarter: 2006Q4

REPORT INFORMATION
  Report Type: 
  Country: None (occurrence: None)
  Receive Date: 20061204
  Receipt Date: 20061018
  Transmission Date: 20070319
  Serious: Yes (Disabling, Other)
  Sender: FDA-Public Use
  Company Number: DE-BRISTOL-MYERS SQUIBB COMPANY-13547013

PATIENT
  Age: 62 Year
  Sex: Female

DRUGS (1)
  1. MEGESTAT [Suspect]
     Indication: OVARIAN CANCER
     Dates: start: 20010101

REACTIONS (1)
  - RETINAL DETACHMENT [None]
